FAERS Safety Report 11560618 (Version 1)
Quarter: 2015Q3

REPORT INFORMATION
  Report Type: Spontaneous
  Country: US (occurrence: US)
  Receive Date: 20150928
  Receipt Date: 20150928
  Transmission Date: 20151125
  Serious: Yes (Hospitalization)
  Sender: FDA-Public Use
  Company Number: US-BEH-2015054005

PATIENT
  Sex: Female

DRUGS (1)
  1. HIZENTRA [Suspect]
     Active Substance: HUMAN IMMUNOGLOBULIN G
     Indication: IMMUNODEFICIENCY COMMON VARIABLE
     Dosage: ON HIZENTRA SINCE COUPLE OF YEARS
     Route: 058

REACTIONS (7)
  - Asthma [Unknown]
  - Sepsis [Unknown]
  - Pneumonia [Unknown]
  - Infection [Recovered/Resolved]
  - Tracheostomy [Unknown]
  - Abscess [Unknown]
  - Staphylococcal infection [Unknown]

NARRATIVE: CASE EVENT DATE: 201505
